FAERS Safety Report 7925645-3 (Version None)
Quarter: 2011Q4

REPORT INFORMATION
  Report Type: 
  Country: None (occurrence: None)
  Receive Date: 20111118
  Receipt Date: 20110411
  Transmission Date: 20120403
  Serious: No
  Sender: FDA-Public Use
  Company Number: US-AMGEN-USASP2011015729

PATIENT
  Age: 50 Year
  Sex: Female

DRUGS (1)
  1. ENBREL [Suspect]
     Indication: RHEUMATOID ARTHRITIS
     Dosage: 50 MG, QWK
     Dates: start: 20110302

REACTIONS (6)
  - PAIN [None]
  - HEADACHE [None]
  - GENERALISED OEDEMA [None]
  - FLUID RETENTION [None]
  - NECK PAIN [None]
  - PAIN IN EXTREMITY [None]
